FAERS Safety Report 24620553 (Version 5)
Quarter: 2025Q2

REPORT INFORMATION
  Report Type: Spontaneous
  Country: AT (occurrence: AT)
  Receive Date: 20241114
  Receipt Date: 20250616
  Transmission Date: 20250716
  Serious: Yes (Other)
  Sender: NOVARTIS
  Company Number: AT-002147023-NVSC2024AT080294

PATIENT
  Age: 9 Month
  Sex: Female

DRUGS (2)
  1. KESIMPTA [Suspect]
     Active Substance: OFATUMUMAB
     Indication: Foetal exposure during pregnancy
     Route: 064
  2. KESIMPTA [Suspect]
     Active Substance: OFATUMUMAB
     Route: 064
     Dates: start: 202404

REACTIONS (7)
  - Respiratory distress [Unknown]
  - Premature baby [Unknown]
  - Congenital cytomegalovirus infection [Recovered/Resolved]
  - Low birth weight baby [Unknown]
  - Hypotonia [Unknown]
  - Foetal exposure during pregnancy [Unknown]
  - Exposure via breast milk [Unknown]

NARRATIVE: CASE EVENT DATE: 20240101
